FAERS Safety Report 7828603-2 (Version None)
Quarter: 2011Q4

REPORT INFORMATION
  Report Type: 
  Country: None (occurrence: None)
  Receive Date: 20111020
  Receipt Date: 20111015
  Transmission Date: 20120403
  Serious: No
  Sender: FDA-Public Use
  Company Number: US-PFIZER INC-2011248332

PATIENT
  Sex: Female

DRUGS (1)
  1. CHILDREN'S ADVIL [Suspect]
     Dosage: UNK, TWICE IN 4 HOURS

REACTIONS (1)
  - COUGH [None]
